FAERS Safety Report 20805449 (Version 2)
Quarter: 2022Q3

REPORT INFORMATION
  Report Type: Report from Study
  Country: CO (occurrence: CO)
  Receive Date: 20220510
  Receipt Date: 20220701
  Transmission Date: 20221027
  Serious: Yes (Hospitalization, Other)
  Sender: FDA-Public Use
  Company Number: CO-AUROBINDO-AUR-APL-2022-015667

PATIENT
  Age: 60 Year
  Sex: Female

DRUGS (1)
  1. FOLOTYN [Suspect]
     Active Substance: PRALATREXATE
     Indication: Lymphoma transformation
     Dosage: 30 MILLIGRAM
     Route: 042
     Dates: start: 20220309, end: 20220414

REACTIONS (5)
  - Platelet count decreased [Unknown]
  - Pyrexia [Recovered/Resolved]
  - Epistaxis [Unknown]
  - Cognitive disorder [Unknown]
  - Delirium [Recovered/Resolved]

NARRATIVE: CASE EVENT DATE: 20220425
